APPROVED DRUG PRODUCT: CARBIDOPA AND LEVODOPA
Active Ingredient: CARBIDOPA; LEVODOPA
Strength: 10MG;100MG
Dosage Form/Route: TABLET;ORAL
Application: A074080 | Product #001
Applicant: SCS PHARMACEUTICALS
Approved: Mar 25, 1994 | RLD: No | RS: No | Type: DISCN